FAERS Safety Report 7913979-8 (Version None)
Quarter: 2011Q4

REPORT INFORMATION
  Report Type: 
  Country: None (occurrence: None)
  Receive Date: 20111114
  Receipt Date: 20111114
  Transmission Date: 20120403
  Serious: Yes (Death, Hospitalization)
  Sender: FDA-Public Use
  Company Number: None

PATIENT
  Sex: Male
  Weight: 67.1 kg

DRUGS (2)
  1. GEMCITABINE HYDROCHLORIDE [Suspect]
     Dosage: 11050 MG
  2. XELODA [Suspect]
     Indication: BILE DUCT CANCER
     Dosage: 140000 MG

REACTIONS (2)
  - DUODENAL ULCER HAEMORRHAGE [None]
  - DISSEMINATED INTRAVASCULAR COAGULATION [None]
